FAERS Safety Report 5501991-8 (Version None)
Quarter: 2007Q4

REPORT INFORMATION
  Report Type: 
  Country: None (occurrence: None)
  Receive Date: 20071030
  Receipt Date: 20071029
  Transmission Date: 20080405
  Serious: Yes (Other)
  Sender: FDA-Public Use
  Company Number: B0359407A

PATIENT
  Sex: Male

DRUGS (11)
  1. SEROXAT [Suspect]
     Route: 065
     Dates: start: 20020501
  2. CHLORPROMAZINE [Concomitant]
  3. OLANZAPINE [Concomitant]
  4. ARTHROTEC [Concomitant]
  5. VALIUM [Concomitant]
  6. NITRAZEPAM [Concomitant]
  7. METHADONE HCL [Concomitant]
  8. BECOTIDE [Concomitant]
  9. VENTOLIN [Concomitant]
  10. SEREVENT [Concomitant]
  11. UNSPECIFIED MEDICATION [Concomitant]
     Route: 065

REACTIONS (6)
  - DEPRESSED MOOD [None]
  - DRUG WITHDRAWAL SYNDROME [None]
  - HYPERHIDROSIS [None]
  - SLEEP DISORDER [None]
  - SUICIDAL BEHAVIOUR [None]
  - TREMOR [None]
